FAERS Safety Report 15390112 (Version 2)
Quarter: 2018Q4

REPORT INFORMATION
  Report Type: Spontaneous
  Country: US (occurrence: US)
  Receive Date: 20180917
  Receipt Date: 20181206
  Transmission Date: 20190204
  Serious: No
  Sender: FDA-Public Use
  Company Number: US-TEVA-2018-US-955385

PATIENT
  Sex: Female

DRUGS (24)
  1. KETOCONAZOLE. [Concomitant]
     Active Substance: KETOCONAZOLE
  2. CEVIMELINE. [Concomitant]
     Active Substance: CEVIMELINE
  3. REXULTI [Concomitant]
     Active Substance: BREXPIPRAZOLE
  4. CLINPRO TOOTH CREME [Concomitant]
     Active Substance: SODIUM FLUORIDE
  5. MAGNESIUM [Concomitant]
     Active Substance: MAGNESIUM
  6. HYDROCODONE-ACETAMINOPHEN [Concomitant]
     Active Substance: ACETAMINOPHEN\HYDROCODONE
  7. TRINTELLIX [Concomitant]
     Active Substance: VORTIOXETINE HYDROBROMIDE
  8. ATORVASTATIN CALCIUM. [Concomitant]
     Active Substance: ATORVASTATIN CALCIUM
  9. MULTIVITAMINS [Concomitant]
     Active Substance: VITAMINS
  10. FLUTICASONE PROPIONATE. [Concomitant]
     Active Substance: FLUTICASONE PROPIONATE
  11. AUSTEDO [Suspect]
     Active Substance: DEUTETRABENAZINE
     Indication: TARDIVE DYSKINESIA
     Dosage: 36 MILLIGRAM DAILY;
     Route: 048
     Dates: start: 20180801
  12. VITAMIN D3 [Concomitant]
     Active Substance: CHOLECALCIFEROL
  13. TRIAMCINOLONE [Concomitant]
     Active Substance: TRIAMCINOLONE
  14. METHYLPREDNISOLONE. [Concomitant]
     Active Substance: METHYLPREDNISOLONE
  15. CELECOXIB. [Concomitant]
     Active Substance: CELECOXIB
  16. AMANTADINE. [Concomitant]
     Active Substance: AMANTADINE HYDROCHLORIDE
  17. CETIRIZINE [Concomitant]
     Active Substance: CETIRIZINE HYDROCHLORIDE
  18. PREMETHRIN [Concomitant]
  19. EXEMESTANE. [Concomitant]
     Active Substance: EXEMESTANE
  20. VITAMIN B COMPLEX [Concomitant]
     Active Substance: CYANOCOBALAMIN\DEXPANTHENOL\NIACINAMIDE\PYRIDOXINE HYDROCHLORIDE\RIBOFLAVIN 5^-PHOSPHATE SODIUM\THIAMINE HYDROCHLORIDE\VITAMIN B COMPLEX
  21. COENZYME Q10 [Concomitant]
     Active Substance: UBIDECARENONE
  22. RESTASIS [Concomitant]
     Active Substance: CYCLOSPORINE
  23. FLUCINONIDE [Concomitant]
  24. TRAMADOL. [Concomitant]
     Active Substance: TRAMADOL

REACTIONS (3)
  - Insomnia [Unknown]
  - Restlessness [Unknown]
  - Fatigue [Unknown]
